FAERS Safety Report 6950711-9 (Version None)
Quarter: 2010Q3

REPORT INFORMATION
  Report Type: 
  Country: None (occurrence: None)
  Receive Date: 20100828
  Receipt Date: 20100219
  Transmission Date: 20110219
  Serious: No
  Sender: FDA-Public Use
  Company Number: US-ABBOTT-10P-163-0628509-00

PATIENT
  Sex: Male
  Weight: 90.8 kg

DRUGS (3)
  1. NIASPAN [Suspect]
     Indication: BLOOD CHOLESTEROL INCREASED
     Dates: start: 20090901
  2. LORATADINE [Concomitant]
     Indication: HYPERSENSITIVITY
     Dates: start: 20100201
  3. TESTOSTERONE [Concomitant]
     Indication: PREMATURE AGEING

REACTIONS (1)
  - PRURITUS [None]
